FAERS Safety Report 5697817-2 (Version None)
Quarter: 2008Q2

REPORT INFORMATION
  Report Type: 
  Country: None (occurrence: None)
  Receive Date: 20080408
  Receipt Date: 20080403
  Transmission Date: 20081010
  Serious: Yes (Hospitalization)
  Sender: FDA-Public Use
  Company Number: FR-BRISTOL-MYERS SQUIBB COMPANY-14137913

PATIENT
  Age: 87 Year
  Sex: Female

DRUGS (9)
  1. BUSPAR [Suspect]
     Dates: end: 20080208
  2. DEROXAT [Suspect]
     Dates: end: 20080208
  3. BUFLOMEDIL [Suspect]
     Dates: end: 20080208
  4. AMLOR [Concomitant]
  5. LASILIX [Concomitant]
  6. BURINEX [Concomitant]
  7. ALDACTONE [Concomitant]
  8. PREVISCAN [Concomitant]
  9. OXYBUTYNIN CHLORIDE [Concomitant]

REACTIONS (5)
  - CARDIAC FAILURE [None]
  - LUNG DISORDER [None]
  - MUSCLE RIGIDITY [None]
  - MYOCLONUS [None]
  - SEROTONIN SYNDROME [None]
